FAERS Safety Report 21568878 (Version 1)
Quarter: 2022Q4

REPORT INFORMATION
  Report Type: Spontaneous
  Country: CN (occurrence: CN)
  Receive Date: 20221108
  Receipt Date: 20221108
  Transmission Date: 20230113
  Serious: Yes (Other)
  Sender: FDA-Public Use
  Company Number: CN-SUN PHARMACEUTICAL INDUSTRIES LTD-2022R1-362493

PATIENT
  Age: 64 Year
  Sex: Male

DRUGS (3)
  1. GEMCITABINE [Suspect]
     Active Substance: GEMCITABINE
     Indication: Bladder transitional cell carcinoma
     Dosage: UNK (4 CYCLES)
     Route: 065
     Dates: start: 202108
  2. OXALIPLATIN [Suspect]
     Active Substance: OXALIPLATIN
     Indication: Bladder transitional cell carcinoma
     Dosage: UNK (4 CYCLES)
     Route: 065
     Dates: start: 202108
  3. DURVALUMAB [Concomitant]
     Active Substance: DURVALUMAB
     Indication: Bladder transitional cell carcinoma
     Dosage: UNK (4 CYCLES)
     Route: 065
     Dates: start: 202108

REACTIONS (1)
  - Condition aggravated [Unknown]
